FAERS Safety Report 8834338 (Version 3)
Quarter: 2013Q2

REPORT INFORMATION
  Report Type: Spontaneous
  Country: US (occurrence: US)
  Receive Date: 20121010
  Receipt Date: 20130402
  Transmission Date: 20140414
  Serious: Yes (Death)
  Sender: FDA-Public Use
  Company Number: US-PFIZER INC-2012248798

PATIENT
  Age: 68 Year
  Sex: Male

DRUGS (3)
  1. REVATIO [Suspect]
     Dosage: UNK
  2. METFORMIN [Concomitant]
     Dosage: UNK
  3. LANTUS [Concomitant]
     Dosage: UNK

REACTIONS (1)
  - Death [Fatal]
